FAERS Safety Report 7441732-0 (Version None)
Quarter: 2011Q2

REPORT INFORMATION
  Report Type: 
  Country: None (occurrence: None)
  Receive Date: 20110428
  Receipt Date: 20110413
  Transmission Date: 20111010
  Serious: Yes (Hospitalization)
  Sender: FDA-Public Use
  Company Number: FR-JNJFOC-20110410252

PATIENT
  Sex: Female

DRUGS (13)
  1. HALDOL [Suspect]
     Indication: CONFUSIONAL STATE
     Route: 048
  2. HALDOL [Suspect]
     Route: 048
  3. KARDEGIC [Concomitant]
     Route: 048
  4. STILNOX [Concomitant]
     Route: 048
  5. ACETAMINOPHEN AND TRAMADOL HCL [Concomitant]
     Indication: PRODUCT USED FOR UNKNOWN INDICATION
     Route: 065
  6. TARDYFERON [Concomitant]
     Route: 048
  7. ATACAND [Concomitant]
     Route: 065
  8. LOVENOX [Suspect]
     Indication: HIP ARTHROPLASTY
     Route: 058
  9. ATENOLOL [Concomitant]
     Route: 048
  10. TRIFLUCAN [Suspect]
     Indication: PRODUCT USED FOR UNKNOWN INDICATION
     Route: 048
  11. ADVIL [Concomitant]
     Route: 065
  12. DAFLON [Concomitant]
     Route: 065
  13. CHONDROSULF [Concomitant]
     Route: 065

REACTIONS (1)
  - THROMBOCYTOPENIA [None]
